FAERS Safety Report 8012579-1 (Version None)
Quarter: 2011Q4

REPORT INFORMATION
  Report Type: 
  Country: None (occurrence: None)
  Receive Date: 20111223
  Receipt Date: 20111223
  Transmission Date: 20120403
  Serious: Yes (Life-Threatening, Disabling, Other)
  Sender: FDA-Public Use
  Company Number: None

PATIENT
  Age: 78 Year
  Sex: Male
  Weight: 83.9154 kg

DRUGS (1)
  1. DALIRESP [Suspect]
     Indication: CHRONIC OBSTRUCTIVE PULMONARY DISEASE
     Dosage: 1 TAB DAY
     Dates: start: 20111114, end: 20111123

REACTIONS (11)
  - HEADACHE [None]
  - ANXIETY [None]
  - MENTAL DISORDER [None]
  - DEPRESSION [None]
  - INFLUENZA LIKE ILLNESS [None]
  - DECREASED APPETITE [None]
  - DIZZINESS [None]
  - SUICIDE ATTEMPT [None]
  - INSOMNIA [None]
  - IMPULSIVE BEHAVIOUR [None]
  - NAUSEA [None]
